FAERS Safety Report 8444817-5 (Version None)
Quarter: 2012Q2

REPORT INFORMATION
  Report Type: 
  Country: None (occurrence: None)
  Receive Date: 20120618
  Receipt Date: 20120612
  Transmission Date: 20120825
  Serious: Yes (Death, Life-Threatening, Hospitalization, Other)
  Sender: FDA-Public Use
  Company Number: PHHY2012BR049201

PATIENT
  Age: 71 Year
  Sex: Female

DRUGS (7)
  1. FORMOTEROL FUMARATE [Concomitant]
     Indication: DYSPNOEA
  2. DONAREN [Concomitant]
     Indication: ANXIETY
  3. DIUPRESS [Concomitant]
     Indication: BLOOD PRESSURE INCREASED
  4. ONBREZ [Suspect]
     Indication: DYSPNOEA
     Dosage: 300 UG, UNK
  5. PREDNISONE [Concomitant]
     Indication: EMPHYSEMA
  6. CLONAZEPAM [Concomitant]
     Indication: DEPRESSION
  7. FLUTICASONE PROPIONATE/SALMETEROL [Concomitant]
     Indication: DYSPNOEA

REACTIONS (3)
  - EMPHYSEMA [None]
  - NOSOCOMIAL INFECTION [None]
  - CEREBROVASCULAR ACCIDENT [None]
